FAERS Safety Report 6023216-X (Version None)
Quarter: 2008Q4

REPORT INFORMATION
  Report Type: 
  Country: None (occurrence: None)
  Receive Date: 20081223
  Receipt Date: 20081212
  Transmission Date: 20090506
  Serious: Yes (Death, Life-Threatening, Hospitalization)
  Sender: FDA-Public Use
  Company Number: 2008002973

PATIENT
  Age: 55 Year
  Sex: Male
  Weight: 96 kg

DRUGS (4)
  1. ERLOTINIB (ERLOTINIB) (TABLET) (ERLOTINIB) [Suspect]
     Indication: NON-SMALL CELL LUNG CANCER
     Dosage: (150 MG, QD), ORAL
     Route: 048
     Dates: start: 20080514, end: 20081022
  2. SUNITINIB/PLACEBO [Suspect]
     Dosage: (37.5 MG, QD), ORAL
     Route: 048
     Dates: start: 20080514, end: 20081022
  3. ACETYLCYSTEINE [Concomitant]
  4. DEXAMETHASONE TAB [Concomitant]

REACTIONS (2)
  - MALIGNANT NEOPLASM PROGRESSION [None]
  - RESPIRATORY FAILURE [None]
